FAERS Safety Report 7244146-1 (Version None)
Quarter: 2011Q1

REPORT INFORMATION
  Report Type: 
  Country: None (occurrence: None)
  Receive Date: 20110125
  Receipt Date: 20110113
  Transmission Date: 20110831
  Serious: Yes (Other)
  Sender: FDA-Public Use
  Company Number: US-ROCHE-749480

PATIENT
  Sex: Male
  Weight: 113.8 kg

DRUGS (3)
  1. BEVACIZUMAB [Suspect]
     Indication: PROSTATE CANCER
     Dosage: DOSE: 15 MG/KG
     Route: 042
     Dates: start: 20100823, end: 20101115
  2. METRONIDAZOLE [Concomitant]
     Dates: start: 20101124, end: 20101207
  3. CIPROFLOXACIN [Concomitant]
     Dates: start: 20101124, end: 20101207

REACTIONS (2)
  - SKIN MASS [None]
  - FUNGAL SKIN INFECTION [None]
